FAERS Safety Report 5172833-8 (Version None)
Quarter: 2006Q4

REPORT INFORMATION
  Report Type: 
  Country: None (occurrence: None)
  Receive Date: 20061213
  Receipt Date: 20060802
  Transmission Date: 20070319
  Serious: No
  Sender: FDA-Public Use
  Company Number: US-AMGEN-KDL188766

PATIENT
  Sex: Female

DRUGS (3)
  1. ENBREL [Suspect]
     Indication: RHEUMATOID ARTHRITIS
     Route: 058
     Dates: start: 20020601
  2. IMURAN [Concomitant]
     Dates: start: 20020101
  3. PLAQUENIL [Concomitant]
     Dates: start: 20020101

REACTIONS (2)
  - ABDOMINAL PAIN [None]
  - DIARRHOEA [None]
